FAERS Safety Report 9499920 (Version 1)
Quarter: 2013Q3

REPORT INFORMATION
  Report Type: Spontaneous
  Country: US (occurrence: US)
  Receive Date: 20130905
  Receipt Date: 20130905
  Transmission Date: 20140515
  Serious: No
  Sender: FDA-Public Use
  Company Number: US-PFIZER INC-2013254730

PATIENT
  Sex: Female

DRUGS (2)
  1. LYRICA [Suspect]
     Dosage: 75 MG IN THE MORNING AND 150 MG AT NIGHT
  2. CYMBALTA [Suspect]
     Dosage: UNK

REACTIONS (5)
  - Drug ineffective [Unknown]
  - Withdrawal syndrome [Unknown]
  - Nausea [Unknown]
  - Pain [Unknown]
  - Abdominal pain [Unknown]
